FAERS Safety Report 16442993 (Version 7)
Quarter: 2019Q3

REPORT INFORMATION
  Report Type: Spontaneous
  Country: DE (occurrence: DE)
  Receive Date: 20190617
  Receipt Date: 20190715
  Transmission Date: 20191004
  Serious: Yes (Hospitalization, Other)
  Sender: FDA-Public Use
  Company Number: PHHY2019DE132043

PATIENT
  Age: 62 Year
  Sex: Male

DRUGS (7)
  1. AZATHIOPRINE. [Concomitant]
     Active Substance: AZATHIOPRINE
     Indication: PEMPHIGUS
     Route: 065
  2. CELLCEPT [Suspect]
     Active Substance: MYCOPHENOLATE MOFETIL\MYCOPHENOLATE MOFETIL HYDROCHLORIDE
     Indication: PEMPHIGUS
     Dosage: 3 G, QD
     Route: 048
     Dates: start: 20170109
  3. CELLCEPT [Suspect]
     Active Substance: MYCOPHENOLATE MOFETIL\MYCOPHENOLATE MOFETIL HYDROCHLORIDE
     Dosage: 2 G, QD
     Route: 048
  4. PREDNISOLONE. [Suspect]
     Active Substance: PREDNISOLONE
     Dosage: 10 MG, QD
     Route: 048
  5. RITUXIMAB. [Suspect]
     Active Substance: RITUXIMAB
     Indication: PEMPHIGUS
     Dosage: 375 MG/M2 THEN EVERY 14 DAYS FOR A FURTHUR SIX WEEKS (TOTAL 7 CYCLES)
     Route: 065
  6. CELLCEPT [Suspect]
     Active Substance: MYCOPHENOLATE MOFETIL\MYCOPHENOLATE MOFETIL HYDROCHLORIDE
     Dosage: 2 G, QD
     Route: 048
  7. PREDNISOLONE. [Suspect]
     Active Substance: PREDNISOLONE
     Indication: PEMPHIGUS
     Dosage: 2 MG/KG BW. HIGH-DOSE
     Route: 048

REACTIONS (8)
  - Bacterial sepsis [Unknown]
  - Proteus infection [Recovered/Resolved]
  - Candida infection [Unknown]
  - Skin lesion [Unknown]
  - General physical health deterioration [Unknown]
  - Clostridium difficile infection [Unknown]
  - Pemphigus [Unknown]
  - Disease progression [Unknown]

NARRATIVE: CASE EVENT DATE: 20180109
